FAERS Safety Report 11290846 (Version 1)
Quarter: 2015Q3

REPORT INFORMATION
  Report Type: Spontaneous
  Country: US (occurrence: None)
  Receive Date: 20150720
  Receipt Date: 20150720
  Transmission Date: 20151125
  Serious: No
  Sender: FDA-Public Use
  Company Number: None

PATIENT
  Age: 32 Year
  Sex: Male
  Weight: 65.32 kg

DRUGS (5)
  1. BENADRYL [Suspect]
     Active Substance: DIPHENHYDRAMINE HYDROCHLORIDE
     Route: 048
     Dates: start: 20150530, end: 20150531
  2. SEROUEL [Concomitant]
  3. RISPERDAL [Concomitant]
     Active Substance: RISPERIDONE
  4. COGENTIN [Concomitant]
     Active Substance: BENZTROPINE MESYLATE
  5. ATIVAN [Concomitant]
     Active Substance: LORAZEPAM

REACTIONS (1)
  - Sedation [None]

NARRATIVE: CASE EVENT DATE: 20150601
